FAERS Safety Report 8896609 (Version 1)
Quarter: 2012Q4

REPORT INFORMATION
  Report Type: 
  Country: US (occurrence: US)
  Receive Date: 20121108
  Receipt Date: 20121108
  Transmission Date: 20130627
  Serious: No
  Sender: FDA-Public Use
  Company Number: US-AMGEN-USASP2012028205

PATIENT
  Sex: Female

DRUGS (13)
  1. ENBREL [Suspect]
     Indication: PRODUCT USED FOR UNKNOWN INDICATION
     Dosage: 50 mg, qwk
     Route: 058
  2. METHOTREXATE [Concomitant]
     Dosage: 2.5 mg, UNK
  3. FOLIC ACID [Concomitant]
     Dosage: 1 mg, UNK
  4. MOBIC [Concomitant]
     Dosage: 7.5 mg, UNK
  5. CENTRUM SILVER                     /01292501/ [Concomitant]
     Dosage: UNK
  6. VITAMIN B12                        /06860901/ [Concomitant]
     Dosage: 250 mug, UNK
  7. LEVOTHYROXIN [Concomitant]
     Dosage: 25 mug, UNK
  8. AMLODIPINE [Concomitant]
     Dosage: 5 mg, UNK
  9. LOSARTAN POTASSIUM [Concomitant]
     Dosage: 25 mg, UNK
  10. LASIX                              /00032601/ [Concomitant]
     Dosage: 20 mg, UNK
  11. ATENOLOL [Concomitant]
     Dosage: 25 mg, UNK
  12. SIMVASTATIN [Concomitant]
     Dosage: 10 mg, UNK
  13. ESTRADIOL [Concomitant]
     Dosage: 0.025 mg, UNK

REACTIONS (1)
  - Pneumonia [Unknown]
